FAERS Safety Report 7545670-4 (Version None)
Quarter: 2011Q2

REPORT INFORMATION
  Report Type: 
  Country: None (occurrence: None)
  Receive Date: 20110613
  Receipt Date: 20110613
  Transmission Date: 20111010
  Serious: Yes (Other)
  Sender: FDA-Public Use
  Company Number: None

PATIENT
  Age: 61 Year
  Sex: Female
  Weight: 91.173 kg

DRUGS (1)
  1. SIMVASTATIN [Suspect]
     Dosage: TAKE ONE DAILY TAB AT HS

REACTIONS (4)
  - FATIGUE [None]
  - MUSCLE SPASMS [None]
  - GAIT DISTURBANCE [None]
  - MYOPATHY [None]
